FAERS Safety Report 18097598 (Version 1)
Quarter: 2020Q3

REPORT INFORMATION
  Report Type: Spontaneous
  Country: US (occurrence: US)
  Receive Date: 20200730
  Receipt Date: 20200730
  Transmission Date: 20201103
  Serious: No
  Sender: FDA-Public Use
  Company Number: None

PATIENT
  Age: 67 Year
  Sex: Male

DRUGS (1)
  1. ALOGLIPTIN (ALOGLIPTIN 12.5MG TAB) [Suspect]
     Active Substance: ALOGLIPTIN
     Route: 048
     Dates: start: 20180604, end: 20200720

REACTIONS (1)
  - Arthritis [None]

NARRATIVE: CASE EVENT DATE: 20200611
